FAERS Safety Report 6891536-2 (Version None)
Quarter: 2010Q3

REPORT INFORMATION
  Report Type: 
  Country: None (occurrence: None)
  Receive Date: 20100731
  Receipt Date: 20070919
  Transmission Date: 20110219
  Serious: Yes (Other)
  Sender: FDA-Public Use
  Company Number: US-PFIZER INC-2007056832

PATIENT
  Sex: Female

DRUGS (2)
  1. NORVASC [Suspect]
     Indication: HYPERTENSION
  2. AMLODIPINE [Suspect]
     Indication: HYPERTENSION
     Dates: start: 20070701

REACTIONS (5)
  - BLISTER [None]
  - CONSTIPATION [None]
  - ECZEMA [None]
  - HYPERSENSITIVITY [None]
  - RASH PRURITIC [None]
